FAERS Safety Report 13651900 (Version 1)
Quarter: 2017Q2

REPORT INFORMATION
  Report Type: Spontaneous
  Country: US (occurrence: US)
  Receive Date: 20170614
  Receipt Date: 20170614
  Transmission Date: 20170830
  Serious: No
  Sender: FDA-Public Use
  Company Number: US-BAYER-2017-113316

PATIENT

DRUGS (7)
  1. LISINOPRIL. [Concomitant]
     Active Substance: LISINOPRIL
  2. ANTIHEMOPHILIC FACTOR VIII, PLASMA/ALBUMIN-FREE (RECOMBINANT) [Concomitant]
     Indication: HAEMORRHAGE
     Dosage: 3000 U, PRN
  3. OXYCODONE [Concomitant]
     Active Substance: OXYCODONE
  4. BAYER ASPIRIN [Suspect]
     Active Substance: ASPIRIN
     Dosage: UNK
  5. TRAMADOL. [Concomitant]
     Active Substance: TRAMADOL
  6. ALEVE [Suspect]
     Active Substance: NAPROXEN SODIUM
     Dosage: UNK
  7. ANTIHEMOPHILIC FACTOR VIII, PLASMA/ALBUMIN-FREE (RECOMBINANT) [Concomitant]
     Indication: HAEMORRHAGE
     Dosage: 5000 U, PRN

REACTIONS (1)
  - Drug hypersensitivity [Unknown]
